FAERS Safety Report 16960245 (Version 1)
Quarter: 2019Q4

REPORT INFORMATION
  Report Type: Spontaneous
  Country: GN (occurrence: GN)
  Receive Date: 20191025
  Receipt Date: 20191025
  Transmission Date: 20200122
  Serious: Yes (Death, Hospitalization, Other)
  Sender: FDA-Public Use
  Company Number: GN-MACLEODS PHARMACEUTICALS US LTD-MAC2019023454

PATIENT

DRUGS (2)
  1. ZIDOVUDINE/LAMIVUDINE [Suspect]
     Active Substance: LAMIVUDINE\ZIDOVUDINE
     Indication: HIV INFECTION
     Dosage: 300/150 MG, AZT (300 MG) + 3TC (150 MG)
     Route: 065
  2. NEVIRAPINE  200 MG [Suspect]
     Active Substance: NEVIRAPINE
     Indication: HIV INFECTION
     Dosage: 200 MILLIGRAM
     Route: 065

REACTIONS (3)
  - Maternal exposure during pregnancy [None]
  - Toxic epidermal necrolysis [Fatal]
  - Stillbirth [Unknown]
